FAERS Safety Report 22197828 (Version 1)
Quarter: 2023Q2

REPORT INFORMATION
  Report Type: Spontaneous
  Country: US (occurrence: US)
  Receive Date: 20230411
  Receipt Date: 20230411
  Transmission Date: 20230722
  Serious: Yes (Death, Life-Threatening, Other)
  Sender: FDA-Public Use
  Company Number: US-PFIZER INC-202300147369

PATIENT
  Age: 63 Year
  Sex: Male

DRUGS (9)
  1. VORICONAZOLE [Suspect]
     Active Substance: VORICONAZOLE
     Indication: Fusarium infection
     Dosage: 100 UG PER 0.1ML INTRAVITREAL INJECTION EVERY 2-4 DAYS ON DAY 30
  2. VORICONAZOLE [Suspect]
     Active Substance: VORICONAZOLE
     Dosage: 200 MG, 2X/DAY
  3. VANCOMYCIN HYDROCHLORIDE [Suspect]
     Active Substance: VANCOMYCIN HYDROCHLORIDE
     Indication: Fusarium infection
     Dosage: UNK
  4. CEFEPIME HYDROCHLORIDE [Suspect]
     Active Substance: CEFEPIME HYDROCHLORIDE
     Indication: Fusarium infection
     Dosage: UNK
  5. AMPHOTERICIN B [Suspect]
     Active Substance: AMPHOTERICIN B
     Indication: Fusarium infection
     Dosage: 5 MG/KG
  6. AMPHOTERICIN B [Suspect]
     Active Substance: AMPHOTERICIN B
     Dosage: 5 UG PER 0.1ML EVERY 5 DAYS INTRAVITREAL INJECTION
  7. TERBINAFINE [Suspect]
     Active Substance: TERBINAFINE
     Indication: Fusarium infection
     Dosage: 250 MG, 2X/DAY
  8. AMPICILLIN [Suspect]
     Active Substance: AMPICILLIN
     Indication: Fusarium infection
     Dosage: UNK
  9. ACYCLOVIR [Suspect]
     Active Substance: ACYCLOVIR
     Indication: Fusarium infection
     Dosage: UNK

REACTIONS (5)
  - Drug ineffective [Fatal]
  - Endophthalmitis [Fatal]
  - Septic shock [Fatal]
  - Off label use [Unknown]
  - Off label use [Unknown]
